FAERS Safety Report 8561400-1 (Version None)
Quarter: 2012Q3

REPORT INFORMATION
  Report Type: 
  Country: None (occurrence: None)
  Receive Date: 20120802
  Receipt Date: 20120731
  Transmission Date: 20120928
  Serious: Yes (Life-Threatening, Disabling)
  Sender: FDA-Public Use
  Company Number: US-GLAXOSMITHKLINE-A0981410A

PATIENT
  Age: 49 Year
  Sex: Male

DRUGS (3)
  1. PREDNISONE [Concomitant]
     Indication: DERMATITIS EXFOLIATIVE
     Dosage: 5MG UNKNOWN
     Route: 048
     Dates: start: 20120222, end: 20120627
  2. SORIATANE [Suspect]
     Indication: PSORIASIS
     Dosage: 25MG PER DAY
     Route: 048
     Dates: start: 20120307, end: 20120308
  3. CYCLOSPORINE [Concomitant]
     Indication: DERMATITIS EXFOLIATIVE
     Dosage: 100MG TWICE PER DAY
     Route: 048
     Dates: start: 20120520, end: 20120620

REACTIONS (2)
  - DERMATITIS EXFOLIATIVE [None]
  - CHILLS [None]
